FAERS Safety Report 4792385-1 (Version None)
Quarter: 2005Q4

REPORT INFORMATION
  Report Type: 
  Country: None (occurrence: None)
  Receive Date: 20051010
  Receipt Date: 20050928
  Transmission Date: 20060501
  Serious: Yes (Other)
  Sender: FDA-Public Use
  Company Number: US-BRISTOL-MYERS SQUIBB COMPANY-13125661

PATIENT
  Age: 75 Year
  Sex: Female

DRUGS (3)
  1. KENALOG-40 [Suspect]
     Indication: RETINAL OEDEMA
     Dates: start: 20050926, end: 20050926
  2. HYDROCHLOROTHIAZIDE [Concomitant]
  3. HUMULIN 70/30 [Concomitant]

REACTIONS (1)
  - ENDOPHTHALMITIS [None]
